FAERS Safety Report 4571263-7 (Version None)
Quarter: 2005Q1

REPORT INFORMATION
  Report Type: 
  Country: None (occurrence: None)
  Receive Date: 20050202
  Receipt Date: 20050119
  Transmission Date: 20050727
  Serious: Yes (Other)
  Sender: FDA-Public Use
  Company Number: MK200501-0177-1

PATIENT
  Age: 50 Year
  Sex: Female

DRUGS (8)
  1. PAMELOR [Suspect]
     Indication: DEPRESSION
     Dosage: 100 MG, HS, PO
     Route: 048
  2. METHYLPHENIDATE [Suspect]
     Indication: DYSPHORIA
     Dosage: 50MG IN 3 DOSES, TID
  3. FLUOXETINE [Concomitant]
  4. GABAPENTIN [Concomitant]
  5. LEVETIRACETAM [Concomitant]
  6. MIDRIN [Concomitant]
  7. PEMOLINE [Concomitant]
  8. SUMATRIPTAN [Concomitant]

REACTIONS (11)
  - ABNORMAL BEHAVIOUR [None]
  - ANGER [None]
  - CONVULSION [None]
  - DECREASED IMMUNE RESPONSIVENESS [None]
  - DYSPHORIA [None]
  - HYPERSOMNIA [None]
  - NAUSEA [None]
  - OVERDOSE [None]
  - SOMNOLENCE [None]
  - SUICIDE ATTEMPT [None]
  - WEIGHT INCREASED [None]
